FAERS Safety Report 21164627 (Version 1)
Quarter: 2022Q3

REPORT INFORMATION
  Report Type: Spontaneous
  Country: CN (occurrence: CN)
  Receive Date: 20220803
  Receipt Date: 20220803
  Transmission Date: 20221027
  Serious: Yes (Hospitalization, Other)
  Sender: FDA-Public Use
  Company Number: None

PATIENT
  Age: 51 Year
  Sex: Female
  Weight: 50 kg

DRUGS (4)
  1. CYCLOPHOSPHAMIDE [Suspect]
     Active Substance: CYCLOPHOSPHAMIDE
     Indication: Breast cancer female
     Dosage: 850.000000MG, ONCE DAILY, CYCLOPHOSPHAMIDE FOR INJECTION 850 MG DILUTED WITH 0.9% SODIUM CHLORIDE IN
     Route: 041
     Dates: start: 20220712, end: 20220712
  2. SODIUM CHLORIDE [Suspect]
     Active Substance: SODIUM CHLORIDE
     Indication: Medication dilution
     Dosage: 500 ML, ONCE DAILY, CYCLOPHOSPHAMIDE FOR INJECTION 850 MG DILUTED WITH 0.9% SODIUM CHLORIDE INJECTIO
     Route: 041
     Dates: start: 20220712, end: 20220712
  3. DEXTROSE MONOHYDRATE [Suspect]
     Active Substance: DEXTROSE MONOHYDRATE
     Indication: Medication dilution
     Dosage: 500 ML, ONCE DAILY, PIRARUBICIN HYDROCHLORIDE FOR INJECTION 70 MG + GLUCOSE INJECTION 500 ML
     Route: 041
     Dates: start: 20220712, end: 20220712
  4. PIRARUBICIN HYDROCHLORIDE [Suspect]
     Active Substance: PIRARUBICIN HYDROCHLORIDE
     Indication: Breast cancer female
     Dosage: 70.000000 MG, ONCE DAILY, PIRARUBICIN HYDROCHLORIDE FOR INJECTION 70 MG + GLUCOSE INJECTION 500 ML
     Route: 041
     Dates: start: 20220712, end: 20220712

REACTIONS (1)
  - Myelosuppression [Recovering/Resolving]

NARRATIVE: CASE EVENT DATE: 20220720
